FAERS Safety Report 5318053-5 (Version None)
Quarter: 2007Q2

REPORT INFORMATION
  Report Type: 
  Country: None (occurrence: None)
  Receive Date: 20070507
  Receipt Date: 20070423
  Transmission Date: 20071010
  Serious: Yes (Hospitalization, Other)
  Sender: FDA-Public Use
  Company Number: US-ROCHE-438845

PATIENT
  Age: 31 Year
  Sex: Female
  Weight: 70.3 kg

DRUGS (1)
  1. ACCUTANE [Suspect]
     Route: 048
     Dates: start: 19930501, end: 19931015

REACTIONS (15)
  - ANAEMIA [None]
  - ANXIETY [None]
  - ARTHRALGIA [None]
  - ARTHRITIS [None]
  - BACK PAIN [None]
  - COLITIS [None]
  - COLITIS ULCERATIVE [None]
  - DEPRESSION [None]
  - FATIGUE [None]
  - ILEUS [None]
  - INFLAMMATORY BOWEL DISEASE [None]
  - INSOMNIA [None]
  - PROCTITIS ULCERATIVE [None]
  - SCOLIOSIS [None]
  - VENTRICULAR EXTRASYSTOLES [None]
